FAERS Safety Report 5711496-7 (Version None)
Quarter: 2008Q2

REPORT INFORMATION
  Report Type: 
  Country: None (occurrence: None)
  Receive Date: 20080421
  Receipt Date: 20080411
  Transmission Date: 20081010
  Serious: Yes (Hospitalization)
  Sender: FDA-Public Use
  Company Number: US-MERCK-0705USA02510

PATIENT
  Age: 66 Year
  Sex: Female

DRUGS (4)
  1. FOSAMAX [Suspect]
     Indication: OSTEOPOROSIS
     Route: 048
     Dates: start: 20030101, end: 20060501
  2. ATENOLOL [Concomitant]
     Indication: BLOOD PRESSURE
     Route: 065
     Dates: start: 19970101
  3. LOTREL [Concomitant]
     Indication: BLOOD PRESSURE
     Route: 065
     Dates: start: 19970101
  4. TRIGLIDE [Concomitant]
     Indication: BLOOD PRESSURE
     Route: 065
     Dates: start: 19970101

REACTIONS (11)
  - ANXIETY [None]
  - DENTAL CARIES [None]
  - DEPRESSION [None]
  - DIABETES MELLITUS [None]
  - GASTROINTESTINAL DISORDER [None]
  - HYPOAESTHESIA [None]
  - JAW DISORDER [None]
  - ORAL PAIN [None]
  - PAIN IN JAW [None]
  - SWELLING [None]
  - TOOTH LOSS [None]
